FAERS Safety Report 9116534 (Version 1)
Quarter: 2013Q1

REPORT INFORMATION
  Report Type: Other
  Country: US (occurrence: US)
  Receive Date: 20130225
  Receipt Date: 20130225
  Transmission Date: 20140127
  Serious: Yes (Hospitalization)
  Sender: FDA-Public Use
  Company Number: US-PURDUE-GBR-2013-0013202

PATIENT
  Age: 45 Year
  Sex: Male

DRUGS (2)
  1. MORPHINE SULFATE [Suspect]
     Indication: BACK PAIN
     Dosage: 1.2 MG, DAILY
     Route: 037
  2. MORPHINE SULFATE [Suspect]
     Indication: BACK PAIN

REACTIONS (2)
  - Infusion site granuloma [Unknown]
  - Osteonecrosis [Unknown]
